FAERS Safety Report 6362078-8 (Version None)
Quarter: 2009Q3

REPORT INFORMATION
  Report Type: 
  Country: None (occurrence: None)
  Receive Date: 20090918
  Receipt Date: 20090914
  Transmission Date: 20100115
  Serious: Yes (Death, Hospitalization)
  Sender: FDA-Public Use
  Company Number: PHHY2009GB39471

PATIENT
  Age: 62 Year
  Sex: Male

DRUGS (4)
  1. CLOZARIL [Suspect]
     Indication: PARKINSON'S DISEASE
     Dosage: UNK
     Route: 048
     Dates: start: 20021127, end: 20021212
  2. APOMORPHINE [Concomitant]
     Indication: PARKINSON'S DISEASE
     Dosage: UNK
     Route: 058
     Dates: start: 19950701
  3. RISPERIDONE [Concomitant]
     Dosage: UNK
     Route: 048
     Dates: start: 20000801, end: 20021130
  4. SINEMET [Concomitant]
     Dosage: UNK
     Route: 048
     Dates: start: 19950701

REACTIONS (8)
  - CARDIOMEGALY [None]
  - GRANULOMATOUS PNEUMONITIS [None]
  - HYPOTENSION [None]
  - MYOCARDITIS [None]
  - PERICARDITIS [None]
  - PLEURAL EFFUSION [None]
  - VENTRICULAR FAILURE [None]
  - VENTRICULAR TACHYCARDIA [None]
